FAERS Safety Report 11127933 (Version 1)
Quarter: 2015Q2

REPORT INFORMATION
  Report Type: Other
  Country: GB (occurrence: GB)
  Receive Date: 20150521
  Receipt Date: 20150521
  Transmission Date: 20150821
  Serious: Yes (Other)
  Sender: FDA-Public Use
  Company Number: GB-MYLANLABS-2015M1015630

PATIENT

DRUGS (2)
  1. GABAPENTIN. [Suspect]
     Active Substance: GABAPENTIN
     Indication: PAIN
     Dosage: 900 MG, TID (900 MG, 3X/DAY (3 TIMES A DAY))
  2. METHADONE [Concomitant]
     Active Substance: METHADONE HYDROCHLORIDE
     Dosage: 75 ML, QD (75 ML, DAILY)

REACTIONS (7)
  - Sedation [Unknown]
  - Overdose [Unknown]
  - Cholinergic syndrome [Unknown]
  - Speech disorder [Unknown]
  - Salivary hypersecretion [Unknown]
  - Extrapyramidal disorder [Unknown]
  - Joint stiffness [Unknown]
